FAERS Safety Report 7220388-6 (Version None)
Quarter: 2011Q1

REPORT INFORMATION
  Report Type: 
  Country: None (occurrence: None)
  Receive Date: 20110111
  Receipt Date: 20110104
  Transmission Date: 20110831
  Serious: Yes (Other)
  Sender: FDA-Public Use
  Company Number: US-TEVA-261907USA

PATIENT
  Sex: Female

DRUGS (2)
  1. MOXIFLOXACIN HYDROCHLORIDE [Concomitant]
  2. METFORMIN HYDROCHLORIDE [Suspect]

REACTIONS (3)
  - RENAL FAILURE [None]
  - BLOOD CREATININE INCREASED [None]
  - PRODUCT ODOUR ABNORMAL [None]
